FAERS Safety Report 25745772 (Version 2)
Quarter: 2025Q3

REPORT INFORMATION
  Report Type: Report from Study
  Country: US (occurrence: US)
  Receive Date: 20250901
  Receipt Date: 20250923
  Transmission Date: 20251021
  Serious: No
  Sender: SANDOZ
  Company Number: US-SANDOZ-SDZ2025US062592

PATIENT
  Age: 7 Year
  Sex: Female

DRUGS (2)
  1. OMNITROPE [Suspect]
     Active Substance: SOMATROPIN
     Indication: Short stature
     Dosage: 0.7 MG, QD, PEN SIZE 10 (STOP DATE: 18-SEP-2025 )
     Route: 058
     Dates: start: 20250709
  2. OMNITROPE [Suspect]
     Active Substance: SOMATROPIN
     Indication: Short stature
     Dosage: 0.7 MG, QD, PEN SIZE 10 (STOP DATE: 18-SEP-2025 )
     Route: 058
     Dates: start: 20250709

REACTIONS (2)
  - Incorrect dose administered by device [Unknown]
  - Device leakage [Unknown]

NARRATIVE: CASE EVENT DATE: 20250709
